FAERS Safety Report 7449152-X (Version None)
Quarter: 2011Q2

REPORT INFORMATION
  Report Type: 
  Country: None (occurrence: None)
  Receive Date: 20110502
  Receipt Date: 20110421
  Transmission Date: 20111010
  Serious: Yes (Other)
  Sender: FDA-Public Use
  Company Number: GB-BIOGENIDEC-2011BI006042

PATIENT
  Sex: Female

DRUGS (3)
  1. TYSABRI [Suspect]
     Indication: RELAPSING-REMITTING MULTIPLE SCLEROSIS
     Route: 042
     Dates: start: 20100819
  2. TYSABRI [Suspect]
     Route: 042
     Dates: start: 20110309
  3. GABAPENTIN [Concomitant]

REACTIONS (1)
  - ABORTION SPONTANEOUS [None]
